FAERS Safety Report 5231976-0 (Version None)
Quarter: 2007Q1

REPORT INFORMATION
  Report Type: 
  Country: None (occurrence: None)
  Receive Date: 20070206
  Receipt Date: 20070112
  Transmission Date: 20070707
  Serious: Yes (Hospitalization)
  Sender: FDA-Public Use
  Company Number: US-AMGEN-KDL206803

PATIENT
  Sex: Female

DRUGS (6)
  1. NEULASTA [Suspect]
     Indication: CHEMOTHERAPY
  2. DEXAMETHASONE [Concomitant]
  3. RITUXAN [Concomitant]
     Dates: start: 20070110
  4. CYCLOPHOSPHAMIDE [Concomitant]
     Dates: start: 20070110
  5. VINCRISTINE [Concomitant]
     Dates: start: 20070110
  6. DOXORUBICIN HYDROCHLORIDE [Concomitant]
     Dates: start: 20070110

REACTIONS (2)
  - SPINAL CORD COMPRESSION [None]
  - WHITE BLOOD CELL COUNT INCREASED [None]
